FAERS Safety Report 13456336 (Version 4)
Quarter: 2017Q2

REPORT INFORMATION
  Report Type: Spontaneous
  Country: JP (occurrence: JP)
  Receive Date: 20170418
  Receipt Date: 20170608
  Transmission Date: 20170830
  Serious: Yes (Hospitalization, Other)
  Sender: FDA-Public Use
  Company Number: JP-PFIZER INC-2017160112

PATIENT
  Age: 80 Year
  Sex: Female
  Weight: 47 kg

DRUGS (4)
  1. IRINOTECAN HCL 40MG HOSPIRA [Suspect]
     Active Substance: IRINOTECAN HYDROCHLORIDE
     Dosage: 150 MG, 1X/DAY
     Route: 041
     Dates: start: 20170411, end: 20170411
  2. AVASTIN [Concomitant]
     Active Substance: BEVACIZUMAB
  3. FLUOROURACIL. [Concomitant]
     Active Substance: FLUOROURACIL
     Indication: CHEMOTHERAPY
  4. LEVOLEUCOVORIN CALCIUM. [Suspect]
     Active Substance: LEVOLEUCOVORIN CALCIUM
     Dosage: 200 MG, 1X/DAY
     Route: 042
     Dates: start: 20170411, end: 20170411

REACTIONS (1)
  - Anaphylactic shock [Recovering/Resolving]

NARRATIVE: CASE EVENT DATE: 20170411
